FAERS Safety Report 10339227 (Version 1)
Quarter: 2014Q3

REPORT INFORMATION
  Report Type: Spontaneous
  Country: IT (occurrence: IT)
  Receive Date: 20140724
  Receipt Date: 20140724
  Transmission Date: 20150326
  Serious: Yes (Other)
  Sender: FDA-Public Use
  Company Number: IT-BAYER-2014-107123

PATIENT
  Age: 36 Year
  Sex: Female

DRUGS (3)
  1. CETRAXAL [Suspect]
     Active Substance: CIPROFLOXACIN
     Indication: STAPHYLOCOCCAL INFECTION
     Dosage: 1000 MG, UNK
     Route: 048
     Dates: start: 20140704, end: 20140704
  2. LACTIC ACID [LACTIC ACID] [Concomitant]
     Dosage: UNK
  3. MECLON [Concomitant]
     Dosage: 100 MG, DAILY DOSE
     Route: 067

REACTIONS (3)
  - Conjunctivitis [Recovered/Resolved]
  - Bronchospasm [Recovered/Resolved]
  - Urticaria [Recovered/Resolved]

NARRATIVE: CASE EVENT DATE: 20140704
